FAERS Safety Report 8318867-3 (Version None)
Quarter: 2012Q2

REPORT INFORMATION
  Report Type: 
  Country: None (occurrence: None)
  Receive Date: 20120427
  Receipt Date: 20120420
  Transmission Date: 20120825
  Serious: Yes (Hospitalization)
  Sender: FDA-Public Use
  Company Number: US-AMGEN-USASP2012025313

PATIENT
  Age: 73 Year
  Sex: Male

DRUGS (2)
  1. ENBREL [Suspect]
     Indication: PSORIATIC ARTHROPATHY
  2. ENBREL [Suspect]
     Indication: ANKYLOSING SPONDYLITIS
     Dosage: 50 MG, QWK
     Dates: start: 20000101

REACTIONS (6)
  - UMBILICAL HERNIA [None]
  - NASOPHARYNGITIS [None]
  - CONJUNCTIVITIS [None]
  - CLOSTRIDIAL INFECTION [None]
  - GASTROENTERITIS NOROVIRUS [None]
  - GAIT DISTURBANCE [None]
